FAERS Safety Report 7920133-2 (Version None)
Quarter: 2011Q4

REPORT INFORMATION
  Report Type: 
  Country: None (occurrence: None)
  Receive Date: 20111117
  Receipt Date: 20111109
  Transmission Date: 20120403
  Serious: Yes (Hospitalization)
  Sender: FDA-Public Use
  Company Number: US-JNJFOC-20111105382

PATIENT
  Sex: Female
  Weight: 54.8 kg

DRUGS (3)
  1. PROBIOTICS [Concomitant]
  2. INFLIXIMAB, RECOMBINANT [Suspect]
     Indication: INFLAMMATORY BOWEL DISEASE
     Route: 042
     Dates: start: 20070921, end: 20100602
  3. ADALIMUMAB [Concomitant]
     Dates: start: 20100701

REACTIONS (1)
  - LIGAMENT RUPTURE [None]
